FAERS Safety Report 21854623 (Version 1)
Quarter: 2023Q1

REPORT INFORMATION
  Report Type: Report from Study
  Country: JP (occurrence: JP)
  Receive Date: 20230112
  Receipt Date: 20230112
  Transmission Date: 20230417
  Serious: Yes (Other)
  Sender: FDA-Public Use
  Company Number: JP-TAKEDA-2021TUS047304

PATIENT
  Age: 11 Year
  Sex: Male

DRUGS (16)
  1. LISDEXAMFETAMINE DIMESYLATE [Suspect]
     Active Substance: LISDEXAMFETAMINE DIMESYLATE
     Indication: Attention deficit hyperactivity disorder
     Dosage: 30 MILLIGRAM, QD
     Route: 048
     Dates: start: 20201210, end: 20201216
  2. LISDEXAMFETAMINE DIMESYLATE [Suspect]
     Active Substance: LISDEXAMFETAMINE DIMESYLATE
     Dosage: 50 MILLIGRAM, QD
     Route: 048
     Dates: start: 20201217, end: 20201223
  3. LISDEXAMFETAMINE DIMESYLATE [Suspect]
     Active Substance: LISDEXAMFETAMINE DIMESYLATE
     Dosage: 70 MILLIGRAM, QD
     Route: 048
     Dates: start: 20201224, end: 20210107
  4. LISDEXAMFETAMINE DIMESYLATE [Suspect]
     Active Substance: LISDEXAMFETAMINE DIMESYLATE
     Dosage: 50 MILLIGRAM, QD
     Route: 048
     Dates: start: 20210108, end: 20210224
  5. LISDEXAMFETAMINE DIMESYLATE [Suspect]
     Active Substance: LISDEXAMFETAMINE DIMESYLATE
     Dosage: 40 MILLIGRAM, QD
     Route: 048
     Dates: start: 20210225, end: 20210318
  6. LISDEXAMFETAMINE DIMESYLATE [Suspect]
     Active Substance: LISDEXAMFETAMINE DIMESYLATE
     Dosage: 20 MILLIGRAM, QD
     Route: 048
     Dates: start: 20210319
  7. ABILIFY [Concomitant]
     Active Substance: ARIPIPRAZOLE
     Dosage: 3 MILLIGRAM, QD
     Route: 065
  8. RISPERDAL [Concomitant]
     Active Substance: RISPERIDONE
     Dosage: 4 MILLIGRAM, QD
     Route: 065
     Dates: end: 20210204
  9. RISPERDAL [Concomitant]
     Active Substance: RISPERIDONE
     Dosage: 3 MILLIGRAM, QD
     Route: 065
     Dates: start: 20210205, end: 20220221
  10. CONCERTA [Concomitant]
     Active Substance: METHYLPHENIDATE HYDROCHLORIDE
     Indication: Attention deficit hyperactivity disorder
     Dosage: 27 MILLIGRAM, QD
     Route: 065
     Dates: start: 20210319
  11. INTUNIV [Concomitant]
     Active Substance: GUANFACINE HYDROCHLORIDE
     Indication: Attention deficit hyperactivity disorder
     Dosage: 0.25 MILLIGRAM, QD
     Route: 065
     Dates: start: 20210628, end: 20210713
  12. INTUNIV [Concomitant]
     Active Substance: GUANFACINE HYDROCHLORIDE
     Dosage: 1 MILLIGRAM, QD
     Route: 065
     Dates: start: 20210714, end: 20210729
  13. INTUNIV [Concomitant]
     Active Substance: GUANFACINE HYDROCHLORIDE
     Dosage: 2 MILLIGRAM, QD
     Route: 065
     Dates: start: 20210730, end: 20211006
  14. INTUNIV [Concomitant]
     Active Substance: GUANFACINE HYDROCHLORIDE
     Dosage: 3 MILLIGRAM, QD
     Route: 065
     Dates: start: 20211007
  15. LUVOX [Concomitant]
     Active Substance: FLUVOXAMINE MALEATE
     Dosage: 25 MILLIGRAM, QD
     Route: 065
     Dates: start: 20211208, end: 20220104
  16. LUVOX [Concomitant]
     Active Substance: FLUVOXAMINE MALEATE
     Dosage: 50 MILLIGRAM, QD
     Route: 065
     Dates: start: 20220105

REACTIONS (4)
  - Autism spectrum disorder [Recovering/Resolving]
  - Gaming disorder [Recovered/Resolved]
  - Headache [Recovered/Resolved]
  - Aggression [Recovered/Resolved]

NARRATIVE: CASE EVENT DATE: 20201225
